FAERS Safety Report 17442445 (Version 3)
Quarter: 2020Q1

REPORT INFORMATION
  Report Type: Report from Study
  Country: CA (occurrence: CA)
  Receive Date: 20200220
  Receipt Date: 20200306
  Transmission Date: 20200409
  Serious: Yes (Other)
  Sender: FDA-Public Use
  Company Number: CA-JNJFOC-20200216185

PATIENT
  Age: 18 Year
  Sex: Male
  Weight: 68.2 kg

DRUGS (1)
  1. REMICADE [Suspect]
     Active Substance: INFLIXIMAB
     Indication: CROHN^S DISEASE
     Dosage: STRENGTH = 100 MG
     Route: 042
     Dates: start: 20180303, end: 20200221

REACTIONS (3)
  - Drug ineffective [Unknown]
  - Appendicectomy [Unknown]
  - Intestinal resection [Unknown]

NARRATIVE: CASE EVENT DATE: 20200209
